FAERS Safety Report 8885450 (Version 4)
Quarter: 2016Q3

REPORT INFORMATION
  Report Type: Report from Study
  Country: CA (occurrence: CA)
  Receive Date: 20121101
  Receipt Date: 20160819
  Transmission Date: 20161109
  Serious: Yes (Other)
  Sender: FDA-Public Use
  Company Number: CA-ROCHE-1148370

PATIENT
  Age: 67 Year
  Sex: Female
  Weight: 77.18 kg

DRUGS (21)
  1. SPIRIVA [Concomitant]
     Active Substance: TIOTROPIUM BROMIDE MONOHYDRATE
  2. TECTA [Concomitant]
     Active Substance: PANTOPRAZOLE MAGNESIUM
  3. SLOW-K [Concomitant]
     Active Substance: POTASSIUM CHLORIDE
  4. TEVETEN [Concomitant]
     Active Substance: EPROSARTAN MESYLATE
  5. SENOKOT [Concomitant]
     Active Substance: SENNOSIDES
  6. RITUXIMAB [Suspect]
     Active Substance: RITUXIMAB
     Indication: RHEUMATOID ARTHRITIS
     Route: 042
     Dates: start: 20110113
  7. GABAPENTIN. [Concomitant]
     Active Substance: GABAPENTIN
  8. COLACE [Concomitant]
     Active Substance: DOCUSATE SODIUM
  9. ADVAIR HFA [Concomitant]
     Active Substance: FLUTICASONE PROPIONATE\SALMETEROL XINAFOATE
  10. AZITHROMYCIN ANHYDROUS. [Concomitant]
     Active Substance: AZITHROMYCIN ANHYDROUS
  11. METHYLPREDNISOLONE. [Concomitant]
     Active Substance: METHYLPREDNISOLONE
     Indication: PREMEDICATION
     Route: 042
     Dates: start: 20110113
  12. CELEXA [Concomitant]
     Active Substance: CITALOPRAM HYDROBROMIDE
  13. HCTZ/TRIAMTERENE [Concomitant]
  14. ACETAMINOPHEN. [Concomitant]
     Active Substance: ACETAMINOPHEN
     Indication: PREMEDICATION
     Route: 048
     Dates: start: 20110113
  15. NORVASC [Concomitant]
     Active Substance: AMLODIPINE BESYLATE
  16. ZOVIRAX [Concomitant]
     Active Substance: ACYCLOVIR
  17. PREDNISONE. [Concomitant]
     Active Substance: PREDNISONE
  18. DIPHENHYDRAMINE. [Concomitant]
     Active Substance: DIPHENHYDRAMINE
     Indication: PREMEDICATION
     Route: 048
     Dates: start: 20110113
  19. LACTULOSE. [Concomitant]
     Active Substance: LACTULOSE
  20. HYDROMORPHONE [Concomitant]
     Active Substance: HYDROMORPHONE
  21. NOVO ALENDRONATE [Concomitant]

REACTIONS (4)
  - Nausea [Recovering/Resolving]
  - Joint swelling [Unknown]
  - Weight fluctuation [Recovering/Resolving]
  - Chronic obstructive pulmonary disease [Not Recovered/Not Resolved]

NARRATIVE: CASE EVENT DATE: 201204
